FAERS Safety Report 11703517 (Version 4)
Quarter: 2016Q1

REPORT INFORMATION
  Report Type: Report from Study
  Country: AU (occurrence: AU)
  Receive Date: 20151105
  Receipt Date: 20160216
  Transmission Date: 20160525
  Serious: Yes (Hospitalization, Other)
  Sender: FDA-Public Use
  Company Number: AU-GILEAD-2015-0180821

PATIENT
  Age: 76 Year
  Sex: Male

DRUGS (6)
  1. BENDAMUSTINE [Suspect]
     Active Substance: BENDAMUSTINE
     Dosage: 116 MG, CYCLICAL
     Route: 042
     Dates: start: 20140515, end: 20140930
  2. IDELALISIB [Suspect]
     Active Substance: IDELALISIB
     Indication: CHRONIC LYMPHOCYTIC LEUKAEMIA
     Dosage: 100 MG, BID
     Route: 048
     Dates: start: 20140712, end: 20151031
  3. RITUXIMAB [Suspect]
     Active Substance: RITUXIMAB
     Dosage: 1164 MG, CYCLICAL
     Route: 042
     Dates: start: 20140515, end: 20140929
  4. IDELALISIB [Suspect]
     Active Substance: IDELALISIB
     Dosage: 150 MG, BID
     Route: 048
     Dates: start: 20140416
  5. BENDAMUSTINE [Suspect]
     Active Substance: BENDAMUSTINE
     Indication: CHRONIC LYMPHOCYTIC LEUKAEMIA
     Dosage: 164 MG, CYCLICAL
     Route: 042
     Dates: start: 20140417, end: 20140418
  6. RITUXIMAB [Suspect]
     Active Substance: RITUXIMAB
     Indication: CHRONIC LYMPHOCYTIC LEUKAEMIA
     Dosage: 877.5 CYCLICAL
     Route: 042
     Dates: start: 20140417, end: 20140417

REACTIONS (3)
  - Febrile neutropenia [Recovered/Resolved]
  - Myelodysplastic syndrome [Not Recovered/Not Resolved]
  - Diarrhoea [Recovered/Resolved]

NARRATIVE: CASE EVENT DATE: 201508
